FAERS Safety Report 7034546-7 (Version None)
Quarter: 2010Q4

REPORT INFORMATION
  Report Type: 
  Country: None (occurrence: None)
  Receive Date: 20101008
  Receipt Date: 20101006
  Transmission Date: 20110411
  Serious: Yes (Other)
  Sender: FDA-Public Use
  Company Number: US-BRISTOL-MYERS SQUIBB COMPANY-15217193

PATIENT
  Age: 50 Year
  Sex: Female

DRUGS (1)
  1. ERBITUX [Suspect]
     Indication: RECTAL CANCER
     Dosage: 775 UNIT NOS TAKEN AS A LOADING DOSE
     Route: 042
     Dates: start: 20091214

REACTIONS (2)
  - CYST [None]
  - OVARIAN CYST [None]
